FAERS Safety Report 18595786 (Version 1)
Quarter: 2020Q4

REPORT INFORMATION
  Report Type: Spontaneous
  Country: US (occurrence: US)
  Receive Date: 20201209
  Receipt Date: 20201209
  Transmission Date: 20210114
  Serious: Yes (Other)
  Sender: FDA-Public Use
  Company Number: US-MYLANLABS-2020M1101246

PATIENT
  Sex: Male

DRUGS (12)
  1. METHOTREXATE. [Suspect]
     Active Substance: METHOTREXATE
     Indication: SKIN DISORDER
     Dosage: 1000 MILLIGRAM/SQ. METER, INTERMEDIATE DOSE
     Route: 065
  2. INDOMETACIN [Suspect]
     Active Substance: INDOMETHACIN
     Indication: SKIN DISORDER
  3. INDOMETACIN [Suspect]
     Active Substance: INDOMETHACIN
     Indication: LANGERHANS^ CELL HISTIOCYTOSIS
     Dosage: 75 MILLIGRAM, QD
     Route: 065
  4. METHOTREXATE. [Suspect]
     Active Substance: METHOTREXATE
     Indication: LANGERHANS^ CELL HISTIOCYTOSIS
     Dosage: 100 MILLIGRAM/SQ. METER, LOW DOSE
     Route: 065
  5. CLADRIBINE. [Suspect]
     Active Substance: CLADRIBINE
     Indication: LANGERHANS^ CELL HISTIOCYTOSIS
     Dosage: 5 MILLIGRAM/SQ. METER, QD, 5 MG/M2 DAILY 5 DAYS/CYCLE
     Route: 065
  6. PREDNISONE. [Suspect]
     Active Substance: PREDNISONE
     Indication: SKIN DISORDER
  7. VINBLASTINE [Suspect]
     Active Substance: VINBLASTINE
     Indication: LANGERHANS^ CELL HISTIOCYTOSIS
     Dosage: VINBLASTINE AS PER ^LOW RISK^ ARM A OF LCH-III
     Route: 065
  8. CLADRIBINE. [Suspect]
     Active Substance: CLADRIBINE
     Indication: SKIN DISORDER
  9. VINBLASTINE [Suspect]
     Active Substance: VINBLASTINE
     Indication: SKIN DISORDER
  10. 6-MERCAPTOPURINE MONOHYDRATE [Concomitant]
     Active Substance: MERCAPTOPURINE
     Indication: SKIN DISORDER
  11. PREDNISONE. [Suspect]
     Active Substance: PREDNISONE
     Indication: LANGERHANS^ CELL HISTIOCYTOSIS
     Route: 065
  12. 6-MERCAPTOPURINE MONOHYDRATE [Concomitant]
     Active Substance: MERCAPTOPURINE
     Indication: LANGERHANS^ CELL HISTIOCYTOSIS
     Route: 065

REACTIONS (4)
  - Gastrointestinal haemorrhage [Unknown]
  - Nausea [Unknown]
  - Treatment failure [Unknown]
  - Off label use [Unknown]
